FAERS Safety Report 19212955 (Version 1)
Quarter: 2021Q2

REPORT INFORMATION
  Report Type: Other
  Country: US (occurrence: US)
  Receive Date: 20210504
  Receipt Date: 20210504
  Transmission Date: 20210717
  Serious: Yes (Hospitalization)
  Sender: FDA-Public Use
  Company Number: US-ROCHE-2576505

PATIENT
  Age: 20 Year
  Sex: Male

DRUGS (1)
  1. BEVACIZUMAB. [Suspect]
     Active Substance: BEVACIZUMAB
     Indication: EAR NEOPLASM
     Route: 065
     Dates: start: 201706

REACTIONS (2)
  - Influenza [Unknown]
  - Extradural abscess [Unknown]
